FAERS Safety Report 18225003 (Version 8)
Quarter: 2021Q1

REPORT INFORMATION
  Report Type: Spontaneous
  Country: US (occurrence: US)
  Receive Date: 20200903
  Receipt Date: 20210223
  Transmission Date: 20210419
  Serious: Yes (Other)
  Sender: FDA-Public Use
  Company Number: US-ROCHE-2666887

PATIENT
  Sex: Male
  Weight: 108.96 kg

DRUGS (2)
  1. LASIX [Concomitant]
     Active Substance: FUROSEMIDE
  2. OCREVUS [Suspect]
     Active Substance: OCRELIZUMAB
     Indication: PRIMARY PROGRESSIVE MULTIPLE SCLEROSIS
     Dosage: ONGOING: UNKNOWN
     Route: 042
     Dates: start: 2018

REACTIONS (22)
  - Wound [Not Recovered/Not Resolved]
  - Gait disturbance [Not Recovered/Not Resolved]
  - Cerebral disorder [Unknown]
  - Infection [Not Recovered/Not Resolved]
  - Precancerous condition [Unknown]
  - Spinal disorder [Unknown]
  - Arthralgia [Not Recovered/Not Resolved]
  - Hyperhidrosis [Not Recovered/Not Resolved]
  - Pseudofolliculitis [Unknown]
  - Pain in extremity [Unknown]
  - Pain [Unknown]
  - Lymphoedema [Not Recovered/Not Resolved]
  - Lymphadenopathy [Unknown]
  - Oropharyngeal pain [Unknown]
  - Herpes virus infection [Not Recovered/Not Resolved]
  - Coagulation time prolonged [Unknown]
  - Ulcer [Not Recovered/Not Resolved]
  - Impaired healing [Unknown]
  - Headache [Unknown]
  - Neck pain [Unknown]
  - Blister [Unknown]
  - Abdominal distension [Unknown]
